FAERS Safety Report 14211374 (Version 1)
Quarter: 2017Q4

REPORT INFORMATION
  Report Type: Spontaneous
  Country: AU (occurrence: AU)
  Receive Date: 20171121
  Receipt Date: 20171121
  Transmission Date: 20180321
  Serious: Yes (Life-Threatening)
  Sender: FDA-Public Use
  Company Number: AU-ALSI-201700412

PATIENT
  Age: 23 Year
  Sex: Female

DRUGS (1)
  1. NITROUS OXIDE. [Suspect]
     Active Substance: NITROUS OXIDE
     Indication: SUBSTANCE USE
     Route: 055

REACTIONS (3)
  - Loss of consciousness [Not Recovered/Not Resolved]
  - Hypoxia [Not Recovered/Not Resolved]
  - Substance use [Not Recovered/Not Resolved]
